FAERS Safety Report 12603532 (Version 1)
Quarter: 2016Q3

REPORT INFORMATION
  Report Type: Spontaneous
  Country: GB (occurrence: GB)
  Receive Date: 20160728
  Receipt Date: 20160728
  Transmission Date: 20161109
  Serious: Yes (Other)
  Sender: FDA-Public Use
  Company Number: GB-BRISTOL-MYERS SQUIBB COMPANY-BMS-2016-060593

PATIENT
  Age: 63 Year

DRUGS (2)
  1. HYDREA [Suspect]
     Active Substance: HYDROXYUREA
     Dosage: 1 G, UNK
     Route: 048
  2. HYDREA [Suspect]
     Active Substance: HYDROXYUREA
     Indication: PRODUCT USED FOR UNKNOWN INDICATION
     Dosage: 500 MG, UNK
     Route: 048

REACTIONS (2)
  - Chest pain [Unknown]
  - Pancytopenia [Unknown]

NARRATIVE: CASE EVENT DATE: 20151130
